FAERS Safety Report 7435356-9 (Version None)
Quarter: 2011Q2

REPORT INFORMATION
  Report Type: 
  Country: None (occurrence: None)
  Receive Date: 20110425
  Receipt Date: 20110420
  Transmission Date: 20111010
  Serious: Yes (Hospitalization)
  Sender: FDA-Public Use
  Company Number: B0712119A

PATIENT
  Sex: Male
  Weight: 109.1 kg

DRUGS (9)
  1. VIAGRA [Concomitant]
  2. GLUCOPHAGE [Concomitant]
  3. AVANDIA [Suspect]
     Indication: DIABETES MELLITUS
     Dosage: 8MG PER DAY
     Route: 048
     Dates: end: 20061201
  4. VIOXX [Concomitant]
  5. AVANDAMET [Suspect]
     Route: 048
     Dates: end: 20060104
  6. GLYBURIDE [Concomitant]
  7. LEXAPRO [Concomitant]
  8. LOVASTATIN [Concomitant]
  9. ADVICOR [Concomitant]

REACTIONS (4)
  - OEDEMA [None]
  - DYSPNOEA [None]
  - HYPOGLYCAEMIA [None]
  - HYPERLIPIDAEMIA [None]
